FAERS Safety Report 7422740-2 (Version None)
Quarter: 2011Q2

REPORT INFORMATION
  Report Type: 
  Country: None (occurrence: None)
  Receive Date: 20110419
  Receipt Date: 20110407
  Transmission Date: 20111010
  Serious: Yes (Other)
  Sender: FDA-Public Use
  Company Number: CN-JNJFOC-20110405573

PATIENT
  Age: 40 Year
  Sex: Male

DRUGS (3)
  1. NIZORAL [Suspect]
     Route: 048
  2. NIZORAL [Suspect]
     Indication: ONYCHOMYCOSIS
     Route: 048
  3. NIZORAL [Suspect]
     Route: 048

REACTIONS (3)
  - PRIAPISM [None]
  - INTENTIONAL DRUG MISUSE [None]
  - SEXUAL DYSFUNCTION [None]
